FAERS Safety Report 9479230 (Version 2)
Quarter: 2013Q3

REPORT INFORMATION
  Report Type: Report from Study
  Country: JP (occurrence: JP)
  Receive Date: 20130827
  Receipt Date: 20130827
  Transmission Date: 20140515
  Serious: Yes (Death, Hospitalization)
  Sender: FDA-Public Use
  Company Number: JP-BAYER-2013-092400

PATIENT
  Age: 82 Year
  Sex: Male
  Weight: 64 kg

DRUGS (11)
  1. RIVAROXABAN [Suspect]
     Indication: CEREBROVASCULAR ACCIDENT PROPHYLAXIS
     Dosage: 10 MG, QD
     Route: 048
     Dates: start: 20130712, end: 20130729
  2. RIVAROXABAN [Interacting]
     Indication: THROMBOSIS PROPHYLAXIS
  3. RIVAROXABAN [Interacting]
     Indication: ATRIAL FIBRILLATION
  4. BAYASPIRIN [Interacting]
     Dosage: 100 MG, QD
     Route: 048
     Dates: end: 20130729
  5. AMLODIPINE [Concomitant]
     Dosage: 2.500 MG, QD
     Route: 048
     Dates: end: 20130729
  6. LANIRAPID [Concomitant]
     Dosage: 0.100 MG, QD
     Route: 048
     Dates: start: 20130226, end: 20130729
  7. DIART [Concomitant]
     Dosage: 30 MG, QD
     Route: 048
     Dates: start: 20130226, end: 20130729
  8. TANATRIL [Concomitant]
     Dosage: 5 MG, QD
     Route: 048
     Dates: start: 20130226, end: 20130729
  9. LIPITOR [Concomitant]
     Dosage: 10 MG, QD
     Route: 048
     Dates: end: 20130729
  10. GASTER D [Concomitant]
     Dosage: 40 MG, QD
     Route: 048
     Dates: end: 20130729
  11. SELBEX [Concomitant]
     Dosage: 150 MG, QD
     Route: 048
     Dates: end: 20130729

REACTIONS (2)
  - Cerebral haemorrhage [Fatal]
  - Drug interaction [None]
